FAERS Safety Report 23009489 (Version 2)
Quarter: 2023Q4

REPORT INFORMATION
  Report Type: Report from Study
  Country: US (occurrence: US)
  Receive Date: 20230929
  Receipt Date: 20231023
  Transmission Date: 20240109
  Serious: Yes (Other)
  Sender: FDA-Public Use
  Company Number: US-ABBVIE-5425879

PATIENT
  Sex: Male

DRUGS (1)
  1. HUMIRA [Suspect]
     Active Substance: ADALIMUMAB
     Indication: Psoriasis
     Dosage: CITRATE FREE?FORM STRENGTH: 40 MG
     Route: 058
     Dates: start: 20230427, end: 20231006

REACTIONS (3)
  - Hypoacusis [Not Recovered/Not Resolved]
  - Psoriasis [Unknown]
  - Medical device site infection [Unknown]

NARRATIVE: CASE EVENT DATE: 20230101
